FAERS Safety Report 25989684 (Version 2)
Quarter: 2025Q4

REPORT INFORMATION
  Report Type: Report from Study
  Country: PK (occurrence: PK)
  Receive Date: 20251103
  Receipt Date: 20251210
  Transmission Date: 20260117
  Serious: Yes (Death)
  Sender: ROCHE
  Company Number: PK-ROCHE-10000425351

PATIENT
  Age: 24 Year
  Sex: Male

DRUGS (1)
  1. MABTHERA [Suspect]
     Active Substance: RITUXIMAB
     Indication: Diffuse large B-cell lymphoma
     Route: 058
     Dates: start: 20250917

REACTIONS (1)
  - Death [Fatal]

NARRATIVE: CASE EVENT DATE: 20251018
